FAERS Safety Report 7824367-7 (Version None)
Quarter: 2011Q4

REPORT INFORMATION
  Report Type: 
  Country: None (occurrence: None)
  Receive Date: 20111019
  Receipt Date: 20111017
  Transmission Date: 20120403
  Serious: Yes (Death, Hospitalization)
  Sender: FDA-Public Use
  Company Number: JP-BRISTOL-MYERS SQUIBB COMPANY-15692247

PATIENT
  Age: 64 Year
  Sex: Female
  Weight: 48 kg

DRUGS (4)
  1. S-1 [Suspect]
     Indication: CERVIX CARCINOMA RECURRENT
     Dosage: CYCLE 1 1MAR11-14MAR11 CYCLE 2 31MAR11-13APR11
     Route: 048
     Dates: start: 20110301, end: 20110413
  2. WARFARIN SODIUM [Suspect]
     Indication: THROMBOSIS
     Route: 048
     Dates: start: 20110415, end: 20110417
  3. CISPLATIN [Suspect]
     Indication: CERVIX CARCINOMA RECURRENT
     Dosage: CYCLE 1:1MAR11-UNK CYCLE 2:31MAR11-UNK
     Route: 042
     Dates: start: 20110301
  4. HEPARIN SODIUM [Suspect]
     Indication: THROMBOSIS
     Dosage: 1DF: 5000 UNITS NOS.
     Route: 042
     Dates: start: 20110414, end: 20110417

REACTIONS (4)
  - DISSEMINATED INTRAVASCULAR COAGULATION [None]
  - DEEP VEIN THROMBOSIS [None]
  - GASTROINTESTINAL HAEMORRHAGE [None]
  - PULMONARY EMBOLISM [None]
